FAERS Safety Report 15308690 (Version 2)
Quarter: 2018Q3

REPORT INFORMATION
  Report Type: Spontaneous
  Country: US (occurrence: US)
  Receive Date: 20180822
  Receipt Date: 20180906
  Transmission Date: 20181010
  Serious: Yes (Hospitalization, Other)
  Sender: FDA-Public Use
  Company Number: US-BAUSCH-BL-2018-023252

PATIENT
  Age: 56 Year
  Sex: Female

DRUGS (2)
  1. MITOMYCIN C [Concomitant]
     Active Substance: MITOMYCIN
     Indication: SQUAMOUS CELL CARCINOMA
     Dosage: 10MG/M2 EQUALS TO 16MG GIVEN ON DAY 1
  2. FLUOROURACIL. [Suspect]
     Active Substance: FLUOROURACIL
     Indication: SQUAMOUS CELL CARCINOMA
     Dosage: 4000 MG/M2 EQUALS TO 6320 MG ADMINISTERED OVER 4 DAYS FROM DAY 1 TO DAY 4
     Route: 065

REACTIONS (4)
  - Thrombocytopenia [Recovered/Resolved]
  - Gastrointestinal toxicity [Recovered/Resolved]
  - Toxicity to various agents [Recovered/Resolved]
  - Neutropenia [Recovered/Resolved]
